FAERS Safety Report 18622378 (Version 3)
Quarter: 2020Q4

REPORT INFORMATION
  Report Type: Spontaneous
  Country: IT (occurrence: IT)
  Receive Date: 20201216
  Receipt Date: 20201231
  Transmission Date: 20210114
  Serious: Yes (Life-Threatening)
  Sender: FDA-Public Use
  Company Number: NVSC2020IT332522

PATIENT
  Age: 22 Year
  Sex: Female

DRUGS (3)
  1. QUETIAPINE. [Concomitant]
     Active Substance: QUETIAPINE
     Indication: ADJUSTMENT DISORDER WITH DEPRESSED MOOD
     Dosage: 50 MG
     Route: 048
  2. PARACETAMOL [Suspect]
     Active Substance: ACETAMINOPHEN
     Indication: INTENTIONAL SELF-INJURY
     Dosage: 13500 MG, TOTAL
     Route: 048
     Dates: start: 20201204, end: 20201204
  3. BUSCOFEN [Suspect]
     Active Substance: IBUPROFEN SODIUM
     Indication: INTENTIONAL SELF-INJURY
     Dosage: 400 MG, TOTAL
     Route: 048
     Dates: start: 20201204, end: 20201204

REACTIONS (8)
  - Intentional self-injury [Unknown]
  - Dysuria [Unknown]
  - Drug-induced liver injury [Unknown]
  - Drug abuse [Unknown]
  - Overdose [Unknown]
  - Malaise [Unknown]
  - Abdominal pain upper [Unknown]
  - Vomiting [Unknown]

NARRATIVE: CASE EVENT DATE: 20201206
